FAERS Safety Report 4374304-5 (Version None)
Quarter: 2004Q2

REPORT INFORMATION
  Report Type: 
  Country: None (occurrence: None)
  Receive Date: 20040608
  Receipt Date: 20040608
  Transmission Date: 20050107
  Serious: Yes (Life-Threatening, Hospitalization)
  Sender: FDA-Public Use
  Company Number: None

PATIENT
  Sex: Female
  Weight: 54.4316 kg

DRUGS (1)
  1. MIRCETTE [Suspect]
     Indication: CONTRACEPTION
     Dosage: DAILY
     Dates: start: 20040324, end: 20040526

REACTIONS (1)
  - PULMONARY EMBOLISM [None]
